FAERS Safety Report 9136023 (Version 1)
Quarter: 2013Q1

REPORT INFORMATION
  Report Type: Spontaneous
  Country: US (occurrence: US)
  Receive Date: 20130219
  Receipt Date: 20130219
  Transmission Date: 20140127
  Serious: No
  Sender: FDA-Public Use
  Company Number: US-BRISTOL-MYERS SQUIBB COMPANY-16481343

PATIENT
  Age: 45 Year
  Sex: Female
  Weight: 68.03 kg

DRUGS (2)
  1. ABATACEPT SUBQ INJECTION 125MG/ML [Suspect]
     Dosage: ALSO: SC
     Route: 042
  2. FLUCONAZOLE [Concomitant]

REACTIONS (4)
  - Rash [Not Recovered/Not Resolved]
  - Lethargy [Unknown]
  - Headache [Unknown]
  - Arthralgia [Unknown]
